FAERS Safety Report 8016614-6 (Version None)
Quarter: 2011Q4

REPORT INFORMATION
  Report Type: 
  Country: None (occurrence: None)
  Receive Date: 20111231
  Receipt Date: 20111226
  Transmission Date: 20120403
  Serious: Yes (Other)
  Sender: FDA-Public Use
  Company Number: CHPA2011FR018174

PATIENT
  Age: 56 Year
  Sex: Female

DRUGS (5)
  1. SCOPOLAMINE [Suspect]
     Indication: MOTION SICKNESS
     Dosage: 1 DF, Q72H
     Route: 062
     Dates: start: 20111108, end: 20111215
  2. SCOPOLAMINE [Suspect]
     Dosage: UNK, UNK
     Route: 062
     Dates: start: 20080101
  3. ESTREVA [Concomitant]
  4. LEVOTHYROXINE SODIUM [Concomitant]
  5. PROGESTERONE [Concomitant]

REACTIONS (4)
  - NAUSEA [None]
  - HEADACHE [None]
  - VISUAL IMPAIRMENT [None]
  - VERTIGO [None]
